FAERS Safety Report 9358898 (Version 4)
Quarter: 2013Q3

REPORT INFORMATION
  Report Type: Spontaneous
  Country: FR (occurrence: FR)
  Receive Date: 20130620
  Receipt Date: 20130926
  Transmission Date: 20140515
  Serious: Yes (Death, Hospitalization, Other)
  Sender: FDA-Public Use
  Company Number: FR-TEVA-413749ISR

PATIENT
  Age: 87 Year
  Sex: Female

DRUGS (10)
  1. FUROSEMIDE TEVA 40 MG [Suspect]
     Dosage: 60 MILLIGRAM DAILY; 1 DF IN MORNING AND 0.5 ON NOON
     Dates: end: 20130608
  2. BISOPROLOL [Suspect]
     Dosage: LONG-STANDING TREATMENT
     Route: 048
  3. CANDESARTAN [Suspect]
     Dosage: 16 MILLIGRAM DAILY; LONG-STANDING TREATMENT
     Route: 048
  4. LANSOPRAZOLE [Suspect]
     Dosage: 15 MILLIGRAM DAILY; LONG-STANDING TREATMENT
     Route: 048
  5. AMIODARONE [Suspect]
     Indication: ATRIAL FIBRILLATION
     Dosage: 1 DOSAGE FORMS DAILY; LONG-STANDING TREATMENT, 1 DOSAGE FORM PER DAY, 5 DAYS A WEEK
     Route: 048
  6. METFORMIN [Suspect]
     Indication: DIABETES MELLITUS
     Dosage: 850 MILLIGRAM DAILY; LONG-STANDING TREATMENT
     Route: 048
     Dates: end: 20130610
  7. PREVISCAN [Suspect]
     Indication: ATRIAL FIBRILLATION
     Dosage: .5 DOSAGE FORMS DAILY; LONG-STANDING TREATMENT
     Route: 048
     Dates: end: 20130607
  8. DERMOVAL [Suspect]
     Dosage: 1 UNKNOWN DAILY; LONG-STANDING TREATMENT
     Route: 003
  9. PAROEX [Suspect]
     Dosage: LONG-STANDING TREATMENT
     Route: 002
  10. AMOXICILLIN [Concomitant]
     Indication: URINARY TRACT INFECTION
     Dosage: 3 GRAM DAILY;
     Dates: start: 20130529, end: 20130606

REACTIONS (14)
  - Cardio-respiratory arrest [Fatal]
  - Somnolence [Recovered/Resolved]
  - Hyponatraemia [Not Recovered/Not Resolved]
  - Hypokalaemia [Recovered/Resolved]
  - Lethargy [Unknown]
  - Asthenia [Unknown]
  - Somnolence [Unknown]
  - International normalised ratio increased [Unknown]
  - Urinary tract infection [Unknown]
  - Dehydration [Unknown]
  - Diarrhoea [Unknown]
  - Renal failure acute [Unknown]
  - Renal failure acute [Unknown]
  - Lung disorder [Unknown]
